FAERS Safety Report 24174790 (Version 1)
Quarter: 2024Q3

REPORT INFORMATION
  Report Type: Spontaneous
  Country: US (occurrence: US)
  Receive Date: 20240805
  Receipt Date: 20240805
  Transmission Date: 20241016
  Serious: No
  Sender: JOHNSON AND JOHNSON
  Company Number: US-JNJFOC-20240803487

PATIENT
  Sex: Male

DRUGS (1)
  1. SIMPONI ARIA [Suspect]
     Active Substance: GOLIMUMAB
     Indication: Rheumatoid arthritis
     Dosage: CALCULATION BASED ON HIS WEIGHT HE SHOULD BE RECEIVING A 138MG DOSE
     Route: 041

REACTIONS (2)
  - Laryngitis [Unknown]
  - Off label use [Unknown]

NARRATIVE: CASE EVENT DATE: 20240801
